FAERS Safety Report 24323958 (Version 2)
Quarter: 2024Q4

REPORT INFORMATION
  Report Type: Spontaneous
  Country: TH (occurrence: TH)
  Receive Date: 20240916
  Receipt Date: 20241004
  Transmission Date: 20250114
  Serious: Yes (Hospitalization, Other)
  Sender: PFIZER
  Company Number: TH-MLMSERVICE-20240903-PI181677-00218-1

PATIENT
  Age: 37 Year
  Sex: Female

DRUGS (6)
  1. METHOTREXATE [Suspect]
     Active Substance: METHOTREXATE
     Indication: Spondylitis
     Dosage: 7.5 MG, WEEKLY
     Route: 048
     Dates: start: 20201123
  2. METHOTREXATE [Suspect]
     Active Substance: METHOTREXATE
     Dosage: 10 MG, WEEKLY
     Route: 048
     Dates: start: 20210301
  3. INDOMETHACIN [Concomitant]
     Active Substance: INDOMETHACIN
     Indication: Spondylitis
     Dosage: 100 MG, 1X/DAY
     Dates: start: 20201123
  4. INDOMETHACIN [Concomitant]
     Active Substance: INDOMETHACIN
     Dosage: 100 MG, 1X/DAY
     Dates: start: 20210301
  5. SULFASALAZINE [Concomitant]
     Active Substance: SULFASALAZINE
     Indication: Spondylitis
     Dosage: 1 G, 1X/DAY
     Dates: start: 20201123
  6. SULFASALAZINE [Concomitant]
     Active Substance: SULFASALAZINE
     Dosage: 2 G, 1X/DAY
     Dates: start: 20210301

REACTIONS (3)
  - COVID-19 pneumonia [Recovered/Resolved]
  - Breakthrough COVID-19 [Recovered/Resolved]
  - Vaccination failure [Recovered/Resolved]

NARRATIVE: CASE EVENT DATE: 20211115
